FAERS Safety Report 12859946 (Version 4)
Quarter: 2016Q4

REPORT INFORMATION
  Report Type: Spontaneous
  Country: CA (occurrence: CA)
  Receive Date: 20161019
  Receipt Date: 20161202
  Transmission Date: 20170207
  Serious: Yes (Hospitalization)
  Sender: FDA-Public Use
  Company Number: CA-GLAXOSMITHKLINE-CA2016GSK144713

PATIENT
  Age: 37 Year
  Sex: Female

DRUGS (4)
  1. NUCALA [Suspect]
     Active Substance: MEPOLIZUMAB
     Dosage: 100 MG, Z
     Route: 042
     Dates: start: 20161019
  2. PREDNISONE. [Concomitant]
     Active Substance: PREDNISONE
  3. NUCALA [Suspect]
     Active Substance: MEPOLIZUMAB
     Indication: ASTHMA
     Dosage: 100 MG, Z
     Route: 042
     Dates: start: 20160906
  4. AVELOX [Concomitant]
     Active Substance: MOXIFLOXACIN HYDROCHLORIDE

REACTIONS (21)
  - Pyrexia [Unknown]
  - Ill-defined disorder [Unknown]
  - Headache [Unknown]
  - Dysphonia [Unknown]
  - Bedridden [Unknown]
  - Condition aggravated [Unknown]
  - Malaise [Unknown]
  - Back pain [Unknown]
  - Drug dose omission [Unknown]
  - Skin warm [Unknown]
  - Pain [Not Recovered/Not Resolved]
  - Oropharyngeal pain [Recovered/Resolved]
  - Pain in extremity [Not Recovered/Not Resolved]
  - Cough [Unknown]
  - Phlebitis [Unknown]
  - Oedema [Unknown]
  - Gait disturbance [Unknown]
  - Cystitis [Unknown]
  - Nasopharyngitis [Unknown]
  - Erythema [Unknown]
  - Urinary tract infection [Unknown]

NARRATIVE: CASE EVENT DATE: 201609
